FAERS Safety Report 10788274 (Version 3)
Quarter: 2015Q1

REPORT INFORMATION
  Report Type: Spontaneous
  Country: US (occurrence: None)
  Receive Date: 20150210
  Receipt Date: 20150304
  Transmission Date: 20150721
  Serious: Yes (Other)
  Sender: FDA-Public Use
  Company Number: 2729923

PATIENT
  Age: 40 Year
  Sex: Female
  Weight: 52.27 kg

DRUGS (2)
  1. LIDOCAINE HCL 1% EPIN 1:100,000 INJ, USP, MULTI DOSE FLIPTOP VIALS (LIDOCAINE HYDROCHLORIDE) [Suspect]
     Active Substance: EPINEPHRINE BITARTRATE\LIDOCAINE HYDROCHLORIDE
     Indication: BIOPSY
     Dosage: ONCE, UNKNOWN, UNKNOWN
     Dates: start: 20140903, end: 20140903
  2. LIDOCAINE HCL 1% EPIN 1:100,000 INJ, USP, MULTI DOSE FLIPTOP VIALS (LIDOCAINE HYDROCHLORIDE) [Suspect]
     Active Substance: EPINEPHRINE BITARTRATE\LIDOCAINE HYDROCHLORIDE
     Indication: MELANOCYTIC NAEVUS
     Dosage: ONCE, UNKNOWN, UNKNOWN
     Dates: start: 20140903, end: 20140903

REACTIONS (10)
  - Skin texture abnormal [None]
  - Hypoaesthesia [None]
  - Skin disorder [None]
  - Nerve injury [None]
  - Scar [None]
  - Dry skin [None]
  - Malaise [None]
  - Skin burning sensation [None]
  - Blister [None]
  - Nervous system disorder [None]

NARRATIVE: CASE EVENT DATE: 201409
